FAERS Safety Report 9221264 (Version 1)
Quarter: 2013Q2

REPORT INFORMATION
  Report Type: Spontaneous
  Country: US (occurrence: US)
  Receive Date: 20130410
  Receipt Date: 20130410
  Transmission Date: 20140414
  Serious: No
  Sender: FDA-Public Use
  Company Number: US-BIOGENIDEC-2013BI030133

PATIENT
  Sex: Female

DRUGS (1)
  1. TYSABRI [Suspect]
     Indication: MULTIPLE SCLEROSIS
     Route: 042
     Dates: start: 20120530

REACTIONS (13)
  - Depression [Unknown]
  - Speech disorder [Unknown]
  - Gait disturbance [Unknown]
  - Hypoaesthesia [Unknown]
  - Musculoskeletal disorder [Unknown]
  - Toothache [Unknown]
  - Gingival swelling [Unknown]
  - Hypoaesthesia oral [Unknown]
  - Night sweats [Unknown]
  - Dysphagia [Unknown]
  - Fatigue [Unknown]
  - Sinusitis [Unknown]
  - Nasopharyngitis [Unknown]
